FAERS Safety Report 19109970 (Version 2)
Quarter: 2021Q2

REPORT INFORMATION
  Report Type: Report from Study
  Country: None (occurrence: US)
  Receive Date: 20210408
  Receipt Date: 20210520
  Transmission Date: 20210717
  Serious: Yes (Hospitalization, Other)
  Sender: FDA-Public Use
  Company Number: US-ABBVIE-21K-163-3742234-00

PATIENT
  Age: 57 Year
  Sex: Male
  Weight: 72.64 kg

DRUGS (13)
  1. HUMIRA [Suspect]
     Active Substance: ADALIMUMAB
     Indication: HIDRADENITIS
     Dosage: CITRATE FREE
     Route: 058
  2. ATORVASTIN [Concomitant]
     Active Substance: ATORVASTATIN
     Indication: BLOOD CHOLESTEROL INCREASED
  3. LANSOPRAZOLE. [Concomitant]
     Active Substance: LANSOPRAZOLE
     Indication: GASTROOESOPHAGEAL REFLUX DISEASE
  4. LISINOPRIL. [Concomitant]
     Active Substance: LISINOPRIL
     Indication: HYPERTENSION
  5. HUMIRA [Suspect]
     Active Substance: ADALIMUMAB
     Indication: HIDRADENITIS
     Route: 058
     Dates: start: 2018
  6. AMLODIPINE [Concomitant]
     Active Substance: AMLODIPINE BESYLATE
     Indication: HYPERTENSION
  7. ASPIRIN. [Concomitant]
     Active Substance: ASPIRIN
     Indication: BLOOD DISORDER
  8. CILOSTAZOL. [Concomitant]
     Active Substance: CILOSTAZOL
     Indication: ANTICOAGULANT THERAPY
  9. HUMIRA [Suspect]
     Active Substance: ADALIMUMAB
  10. HUMIRA [Suspect]
     Active Substance: ADALIMUMAB
  11. TAMSULOSIN [Concomitant]
     Active Substance: TAMSULOSIN
     Indication: NEPHROLITHIASIS
  12. TRAMADOL. [Concomitant]
     Active Substance: TRAMADOL
     Indication: PRODUCT USED FOR UNKNOWN INDICATION
  13. IBUPROFEN. [Concomitant]
     Active Substance: IBUPROFEN
     Indication: PRODUCT USED FOR UNKNOWN INDICATION

REACTIONS (8)
  - Aortic aneurysm [Recovered/Resolved]
  - Nephrolithiasis [Recovered/Resolved]
  - Furuncle [Not Recovered/Not Resolved]
  - Pain in extremity [Unknown]
  - Abscess limb [Recovered/Resolved]
  - Back pain [Unknown]
  - Hidradenitis [Unknown]
  - Cardiac operation [Unknown]

NARRATIVE: CASE EVENT DATE: 2018
